FAERS Safety Report 10750069 (Version 1)
Quarter: 2015Q1

REPORT INFORMATION
  Report Type: Spontaneous
  Country: US (occurrence: US)
  Receive Date: 20150129
  Receipt Date: 20150129
  Transmission Date: 20150721
  Serious: No
  Sender: FDA-Public Use
  Company Number: US-BIOGENIDEC-2015BI010221

PATIENT
  Sex: Female

DRUGS (1)
  1. TECFIDERA [Suspect]
     Active Substance: DIMETHYL FUMARATE
     Indication: MULTIPLE SCLEROSIS
     Route: 048

REACTIONS (5)
  - Body temperature increased [Recovered/Resolved]
  - Abasia [Not Recovered/Not Resolved]
  - Rib fracture [Recovered/Resolved with Sequelae]
  - Flushing [Recovered/Resolved]
  - Eye irritation [Recovered/Resolved]
